FAERS Safety Report 5046341-9 (Version None)
Quarter: 2006Q3

REPORT INFORMATION
  Report Type: 
  Country: None (occurrence: None)
  Receive Date: 20060710
  Receipt Date: 20060622
  Transmission Date: 20061208
  Serious: Yes (Other)
  Sender: FDA-Public Use
  Company Number: PHBS2006IT09558

PATIENT
  Age: 39 Year
  Sex: Male

DRUGS (1)
  1. GLEEVEC [Suspect]
     Indication: CHRONIC MYELOID LEUKAEMIA
     Dosage: 400 MG/D
     Route: 048
     Dates: start: 20060504, end: 20060518

REACTIONS (7)
  - DIABETIC RETINOPATHY [None]
  - EYE DISORDER [None]
  - LEUKAEMIC RETINOPATHY [None]
  - MACULAR OEDEMA [None]
  - RETINAL ISCHAEMIA [None]
  - RETINAL NEOVASCULARISATION [None]
  - VITREOUS HAEMORRHAGE [None]
